FAERS Safety Report 9765754 (Version 1)
Quarter: 2013Q4

REPORT INFORMATION
  Report Type: Spontaneous
  Country: US (occurrence: US)
  Receive Date: 20131217
  Receipt Date: 20131217
  Transmission Date: 20140711
  Serious: No
  Sender: FDA-Public Use
  Company Number: US-BIOGENIDEC-2013BI116336

PATIENT
  Sex: Female
  Weight: 91 kg

DRUGS (6)
  1. TECFIDERA [Suspect]
     Indication: MULTIPLE SCLEROSIS
     Route: 048
  2. TECFIDERA [Suspect]
     Indication: MULTIPLE SCLEROSIS
     Route: 048
  3. CELEXA [Concomitant]
  4. TOPAMAX [Concomitant]
  5. VALIUM [Concomitant]
  6. IBUPROFEN [Concomitant]

REACTIONS (2)
  - Underdose [Unknown]
  - Pruritus generalised [Recovered/Resolved]
